FAERS Safety Report 4846384-1 (Version None)
Quarter: 2005Q4

REPORT INFORMATION
  Report Type: 
  Country: None (occurrence: None)
  Receive Date: 20051115
  Receipt Date: 20050722
  Transmission Date: 20060501
  Serious: No
  Sender: FDA-Public Use
  Company Number: S05-USA-03604-01

PATIENT
  Age: 69 Year
  Sex: Female

DRUGS (4)
  1. NAMENDA [Suspect]
     Indication: DEMENTIA ALZHEIMER'S TYPE
     Dosage: 5 MG QD PO
     Route: 048
     Dates: start: 20050715, end: 20050712
  2. NAMENDA [Suspect]
     Indication: DEMENTIA ALZHEIMER'S TYPE
     Dosage: 5 MG BID PO
     Route: 048
     Dates: start: 20050722
  3. METOPROLOL [Concomitant]
  4. FLECAINIDE ACETATE [Concomitant]

REACTIONS (2)
  - DYSGEUSIA [None]
  - THROAT IRRITATION [None]
